FAERS Safety Report 22530179 (Version 1)
Quarter: 2023Q2

REPORT INFORMATION
  Report Type: Spontaneous
  Country: US (occurrence: None)
  Receive Date: 20230606
  Receipt Date: 20230606
  Transmission Date: 20230721
  Serious: Yes (Death)
  Sender: FDA-Public Use
  Company Number: None

PATIENT
  Age: 13 Year
  Sex: Male
  Weight: 65.8 kg

DRUGS (5)
  1. OLANZAPINE [Suspect]
     Active Substance: OLANZAPINE
     Dates: start: 20230505, end: 20230512
  2. BRIVARACETAM [Concomitant]
     Active Substance: BRIVARACETAM
  3. CLOBAZAM [Concomitant]
     Active Substance: CLOBAZAM
  4. DIVALPROEX SODIUM [Concomitant]
     Active Substance: DIVALPROEX SODIUM
  5. QUETIAPINE [Concomitant]
     Active Substance: QUETIAPINE

REACTIONS (8)
  - Neuroleptic malignant syndrome [None]
  - Generalised tonic-clonic seizure [None]
  - Cardiac arrest [None]
  - Torsade de pointes [None]
  - Shock [None]
  - Multiple organ dysfunction syndrome [None]
  - Hypoxic-ischaemic encephalopathy [None]
  - Brain herniation [None]

NARRATIVE: CASE EVENT DATE: 20230512
